FAERS Safety Report 25442154 (Version 2)
Quarter: 2025Q2

REPORT INFORMATION
  Report Type: Spontaneous
  Country: US (occurrence: US)
  Receive Date: 20250616
  Receipt Date: 20250617
  Transmission Date: 20250716
  Serious: Yes (Other)
  Sender: JOHNSON AND JOHNSON
  Company Number: US-JNJFOC-20250611823

PATIENT
  Sex: Male

DRUGS (1)
  1. RISPERDAL [Suspect]
     Active Substance: RISPERIDONE
     Indication: Aggression
     Route: 048

REACTIONS (6)
  - Self-destructive behaviour [Unknown]
  - Overweight [Recovering/Resolving]
  - Drug ineffective [Unknown]
  - Sedation [Unknown]
  - Increased appetite [Unknown]
  - Drooling [Unknown]
